FAERS Safety Report 16252443 (Version 14)
Quarter: 2023Q2

REPORT INFORMATION
  Report Type: Report from Study
  Country: JP (occurrence: JP)
  Receive Date: 20190429
  Receipt Date: 20230613
  Transmission Date: 20230721
  Serious: Yes (Death, Hospitalization, Other)
  Sender: FDA-Public Use
  Company Number: JP-BRISTOL-MYERS SQUIBB COMPANY-BMS-2019-021420

PATIENT
  Age: 58 Year
  Sex: Male
  Weight: 61.5 kg

DRUGS (2)
  1. NIVOLUMAB [Suspect]
     Active Substance: NIVOLUMAB
     Indication: Gastric cancer
     Route: 041
     Dates: start: 20180817, end: 20181030
  2. NICERGOLINE [Suspect]
     Active Substance: NICERGOLINE
     Indication: Product used for unknown indication

REACTIONS (7)
  - Pneumocystis jirovecii pneumonia [Fatal]
  - Blood alkaline phosphatase increased [Not Recovered/Not Resolved]
  - Aspartate aminotransferase increased [Not Recovered/Not Resolved]
  - Alanine aminotransferase increased [Not Recovered/Not Resolved]
  - Immune-mediated cholangitis [Not Recovered/Not Resolved]
  - Colitis [Unknown]
  - Off label use [Unknown]

NARRATIVE: CASE EVENT DATE: 20181030
